FAERS Safety Report 8940016 (Version 9)
Quarter: 2014Q2

REPORT INFORMATION
  Report Type: Spontaneous
  Country: US (occurrence: US)
  Receive Date: 20121203
  Receipt Date: 20140502
  Transmission Date: 20141212
  Serious: Yes (Life-Threatening, Hospitalization, Disabling, Other)
  Sender: FDA-Public Use
  Company Number: US-009507513-1211USA011505

PATIENT
  Sex: Male
  Weight: 121.1 kg

DRUGS (1)
  1. JANUMET [Suspect]
     Indication: TYPE 2 DIABETES MELLITUS
     Dosage: 50 MG/1000 MG, BID
     Route: 048
     Dates: start: 20080904, end: 20101201

REACTIONS (35)
  - Pancreatic carcinoma metastatic [Not Recovered/Not Resolved]
  - Stent placement [Unknown]
  - Hyperglycaemia [Recovered/Resolved]
  - Device occlusion [Recovered/Resolved]
  - Leukocytosis [Recovered/Resolved]
  - Hypokalaemia [Unknown]
  - Transaminases increased [Recovering/Resolving]
  - Pancreatitis [Not Recovered/Not Resolved]
  - Abdominal pain [Recovering/Resolving]
  - Neuropathy peripheral [Unknown]
  - Cholecystitis chronic [Not Recovered/Not Resolved]
  - Dyslipidaemia [Unknown]
  - Osteoarthritis [Unknown]
  - Coronary artery disease [Unknown]
  - Arteriosclerosis coronary artery [Unknown]
  - Anxiety [Unknown]
  - Pollakiuria [Unknown]
  - Haemorrhoids [Unknown]
  - Type V hyperlipidaemia [Unknown]
  - Faeces pale [Unknown]
  - Hypertrophic cardiomyopathy [Unknown]
  - Sleep apnoea syndrome [Unknown]
  - Gallbladder polyp [Unknown]
  - Polydipsia [Unknown]
  - Malaise [Unknown]
  - Depression [Not Recovered/Not Resolved]
  - Fatigue [Not Recovered/Not Resolved]
  - Cardiac ablation [Unknown]
  - Vertebroplasty [Unknown]
  - Cytoreductive surgery [Unknown]
  - Upper respiratory tract infection [Unknown]
  - Abdominal pain upper [Not Recovered/Not Resolved]
  - Diarrhoea [Unknown]
  - Nausea [Unknown]
  - Nausea [Unknown]
